FAERS Safety Report 16560006 (Version 2)
Quarter: 2019Q3

REPORT INFORMATION
  Report Type: Report from Study
  Country: None (occurrence: US)
  Receive Date: 20190711
  Receipt Date: 20190821
  Transmission Date: 20191004
  Serious: Yes (Hospitalization)
  Sender: FDA-Public Use
  Company Number: US-ABBVIE-19K-163-2839355-00

PATIENT
  Sex: Female

DRUGS (1)
  1. VENCLEXTA [Suspect]
     Active Substance: VENETOCLAX
     Indication: ACUTE MYELOID LEUKAEMIA
     Route: 048
     Dates: start: 20190617, end: 20190628

REACTIONS (6)
  - Dizziness [Unknown]
  - Blood count abnormal [Unknown]
  - Muscular weakness [Unknown]
  - Renal failure [Unknown]
  - Cardiac arrest [Unknown]
  - Gait inability [Unknown]

NARRATIVE: CASE EVENT DATE: 2019
